FAERS Safety Report 9422374 (Version 2)
Quarter: 2013Q3

REPORT INFORMATION
  Report Type: Spontaneous
  Country: AU (occurrence: None)
  Receive Date: 20130717
  Receipt Date: 20130812
  Transmission Date: 20140515
  Serious: Yes (Other)
  Sender: FDA-Public Use
  Company Number: GAM-197-13-AU

PATIENT
  Age: 42 Year
  Sex: Female

DRUGS (1)
  1. OCTAGAM [Suspect]
     Indication: CHRONIC INFLAMMATORY DEMYELINATING POLYRADICULONEUROPATHY
     Dosage: 30 G (1X1/CYCLICAL INTRAVENOUS (NOT OTHERWISE SPECIFIED)?
     Route: 042
     Dates: start: 20130605, end: 20130605

REACTIONS (4)
  - Pain [None]
  - Rash [None]
  - Pyrexia [None]
  - Hallucination [None]
